FAERS Safety Report 8612371 (Version 3)
Quarter: 2012Q4

REPORT INFORMATION
  Report Type: 
  Country: US (occurrence: US)
  Receive Date: 20120613
  Receipt Date: 20121120
  Transmission Date: 20130627
  Serious: Yes (Other)
  Sender: FDA-Public Use
  Company Number: US-GILEAD-2012-0056415

PATIENT
  Sex: Female

DRUGS (2)
  1. LETAIRIS [Suspect]
     Indication: PULMONARY HYPERTENSION
     Dosage: 5 mg, QD
     Route: 048
     Dates: start: 20090602, end: 201210
  2. LETAIRIS [Suspect]
     Indication: COR PULMONALE CHRONIC

REACTIONS (1)
  - Lung neoplasm malignant [Unknown]
